FAERS Safety Report 4884930-2 (Version None)
Quarter: 2006Q1

REPORT INFORMATION
  Report Type: 
  Country: None (occurrence: None)
  Receive Date: 20060117
  Receipt Date: 20060104
  Transmission Date: 20060701
  Serious: Yes (Hospitalization)
  Sender: FDA-Public Use
  Company Number: GXBR2006US00472

PATIENT
  Sex: Female

DRUGS (8)
  1. LABETALOL HYDROCHLORIDE [Suspect]
  2. REQUIP [Suspect]
  3. DILTIAZEM [Suspect]
  4. PLAVIX [Suspect]
  5. ZOLOFT [Suspect]
  6. ASPIRIN [Suspect]
  7. HYZAAR [Suspect]
  8. CARBIDOPA (CARBIDOPA) [Suspect]

REACTIONS (3)
  - HIP FRACTURE [None]
  - OSTEOARTHRITIS [None]
  - STENT PLACEMENT [None]
